FAERS Safety Report 26149862 (Version 1)
Quarter: 2025Q4

REPORT INFORMATION
  Report Type: Spontaneous
  Country: CN (occurrence: CN)
  Receive Date: 20251212
  Receipt Date: 20251212
  Transmission Date: 20260118
  Serious: Yes (Hospitalization, Other)
  Sender: BAXTER
  Company Number: None

PATIENT
  Age: 49 Year
  Sex: Female
  Weight: 50 kg

DRUGS (6)
  1. CYCLOPHOSPHAMIDE [Suspect]
     Active Substance: CYCLOPHOSPHAMIDE
     Indication: Lymphoma
     Dosage: 1 G, QD
     Route: 041
     Dates: start: 20251123, end: 20251123
  2. SODIUM CHLORIDE [Suspect]
     Active Substance: SODIUM CHLORIDE
     Dosage: 500 ML, QD WITH CYCLOPHOSPHAMIDE
     Route: 041
     Dates: start: 20251123, end: 20251123
  3. SODIUM CHLORIDE [Suspect]
     Active Substance: SODIUM CHLORIDE
     Dosage: 60 ML, QD WITH VINDESINE
     Route: 041
     Dates: start: 20251123, end: 20251123
  4. SODIUM CHLORIDE [Suspect]
     Active Substance: SODIUM CHLORIDE
     Dosage: 100 ML, QD WITH EPIRUBICIN
     Route: 041
     Dates: start: 20251123, end: 20251123
  5. EPIRUBICIN HYDROCHLORIDE [Suspect]
     Active Substance: EPIRUBICIN HYDROCHLORIDE
     Indication: Lymphoma
     Dosage: 100 MG, QD
     Route: 041
     Dates: start: 20251123, end: 20251123
  6. VINDESINE SULFATE [Suspect]
     Active Substance: VINDESINE SULFATE
     Indication: Lymphoma
     Dosage: 4 MG, QD
     Route: 041
     Dates: start: 20251123, end: 20251123

REACTIONS (1)
  - Myelosuppression [Recovering/Resolving]

NARRATIVE: CASE EVENT DATE: 20251201
